FAERS Safety Report 16693525 (Version 2)
Quarter: 2019Q3

REPORT INFORMATION
  Report Type: Spontaneous
  Country: AU (occurrence: AU)
  Receive Date: 20190812
  Receipt Date: 20190820
  Transmission Date: 20191004
  Serious: Yes (Death, Life-Threatening, Hospitalization, Other)
  Sender: FDA-Public Use
  Company Number: AU-PFIZER INC-2019342111

PATIENT
  Age: 70 Year
  Sex: Female

DRUGS (7)
  1. DEXAMETHASONE SODIUM PHOSPHATE. [Suspect]
     Active Substance: DEXAMETHASONE SODIUM PHOSPHATE
     Dosage: ON DAYS 2-3, 8 MG EVERY 14 DAYS (CYCLIC)
  2. AKYNZEO [Suspect]
     Active Substance: NETUPITANT\PALONOSETRON HYDROCHLORIDE
     Indication: BREAST CANCER STAGE I
     Dosage: 1 DF, EVERY 14 DAYS (CYCLIC)
  3. DEXAMETHASONE SODIUM PHOSPHATE. [Suspect]
     Active Substance: DEXAMETHASONE SODIUM PHOSPHATE
     Dosage: ON DAYS 4 -5, 4 MG EVERY 14 DAYS (CYCLIC)
  4. PEGFILGRASTIM [Suspect]
     Active Substance: PEGFILGRASTIM
     Indication: BREAST CANCER STAGE I
     Dosage: ON DAY 2, EVERY 14 DAYS (CYCLIC)
  5. DEXAMETHASONE SODIUM PHOSPHATE. [Suspect]
     Active Substance: DEXAMETHASONE SODIUM PHOSPHATE
     Indication: BREAST CANCER
     Dosage: ON DAY 1, 16 MG EVERY 14 DAYS (CYCLIC)
  6. DOXORUBICIN HCL [Suspect]
     Active Substance: DOXORUBICIN HYDROCHLORIDE
     Indication: BREAST CANCER
     Dosage: ON DAY 1, 60 MG/M2 EVERY 14 DAYS (CYCLIC) - DOSE-DENSE AC
  7. CYCLOPHOSPHAMIDE. [Suspect]
     Active Substance: CYCLOPHOSPHAMIDE
     Indication: BREAST CANCER
     Dosage: ON DAY 1, 600 MG/M2 EVERY 4 DAYS (CICLIC) - DOSE-DENSE AC

REACTIONS (1)
  - Pneumocystis jirovecii pneumonia [Fatal]
